FAERS Safety Report 6370689-9 (Version None)
Quarter: 2009Q3

REPORT INFORMATION
  Report Type: 
  Country: None (occurrence: None)
  Receive Date: 20090923
  Receipt Date: 20071105
  Transmission Date: 20100115
  Serious: Yes (Other)
  Sender: FDA-Public Use
  Company Number: US-ASTRAZENECA-2006UW25168

PATIENT
  Age: 47 Year
  Sex: Male

DRUGS (12)
  1. SEROQUEL [Suspect]
     Indication: PSYCHOTIC DISORDER
     Dosage: 250 MG MORNING AND 500 MG AT NIGHT
     Route: 048
     Dates: start: 20050817
  2. SEROQUEL [Suspect]
     Route: 048
     Dates: start: 20050819, end: 20061001
  3. SEROQUEL [Suspect]
     Dosage: 300 MG MORNING AND 500 MG AT NIGHT
     Route: 048
     Dates: start: 20051016
  4. SEROQUEL [Suspect]
     Dosage: 200 MG MORNING AND 600 MG AT NIGHT
     Route: 048
     Dates: start: 20051121
  5. SEROQUEL [Suspect]
     Dosage: 300 MG MORNING AND 600 MG AT NIGHT
     Route: 048
     Dates: start: 20060406
  6. GEODON [Concomitant]
     Dates: start: 20060101
  7. ZYPREXA [Concomitant]
  8. LIPITOR [Concomitant]
     Route: 048
     Dates: start: 20060329
  9. PRILOSEC [Concomitant]
     Route: 048
     Dates: start: 20060329
  10. PROLIXIN [Concomitant]
     Route: 048
     Dates: start: 20060329
  11. BENADRYL [Concomitant]
     Route: 048
     Dates: start: 20060329
  12. RISPERDAL [Concomitant]
     Route: 030
     Dates: start: 20051122

REACTIONS (3)
  - DIABETES MELLITUS [None]
  - DIABETIC COMA [None]
  - DIABETIC KETOACIDOSIS [None]
